FAERS Safety Report 6458682-9 (Version None)
Quarter: 2009Q4

REPORT INFORMATION
  Report Type: 
  Country: None (occurrence: None)
  Receive Date: 20091120
  Receipt Date: 20091105
  Transmission Date: 20100525
  Serious: Yes (Hospitalization)
  Sender: FDA-Public Use
  Company Number: 2009BM000194

PATIENT
  Age: 15 Year
  Sex: Female
  Weight: 22 kg

DRUGS (3)
  1. NAGLAZYME [Suspect]
     Indication: MUCOPOLYSACCHARIDOSIS VI
     Dosage: 22 ML;QW; IVDRP
     Route: 041
     Dates: start: 20071114
  2. DIPYRONE [Concomitant]
  3. HIXIZINE /00058401/ [Concomitant]

REACTIONS (5)
  - CHILLS [None]
  - INGUINAL HERNIA [None]
  - MEDICAL DEVICE CHANGE [None]
  - PYREXIA [None]
  - UMBILICAL HERNIA [None]
